FAERS Safety Report 7163536-9 (Version None)
Quarter: 2010Q4

REPORT INFORMATION
  Report Type: 
  Country: None (occurrence: None)
  Receive Date: 20101215
  Receipt Date: 20101208
  Transmission Date: 20110411
  Serious: Yes (Hospitalization)
  Sender: FDA-Public Use
  Company Number: BR-US-EMD SERONO, INC.-7031388

PATIENT
  Sex: Female

DRUGS (6)
  1. REBIF [Suspect]
     Indication: RELAPSING-REMITTING MULTIPLE SCLEROSIS
     Dates: start: 20100101
  2. FENITOIN [Concomitant]
  3. PAROXETINE HCL [Concomitant]
  4. PREDNISONE [Concomitant]
  5. LIORESAL [Concomitant]
  6. CLEXANE [Concomitant]

REACTIONS (8)
  - CENTRAL NERVOUS SYSTEM LESION [None]
  - CHILLS [None]
  - DYSPHAGIA [None]
  - HEADACHE [None]
  - MONOPLEGIA [None]
  - MUSCULAR WEAKNESS [None]
  - URINARY INCONTINENCE [None]
  - URINARY RETENTION [None]
